FAERS Safety Report 8824979 (Version 2)
Quarter: 2012Q4

REPORT INFORMATION
  Report Type: 
  Country: NL (occurrence: NL)
  Receive Date: 20121004
  Receipt Date: 20121114
  Transmission Date: 20130627
  Serious: Yes (Hospitalization)
  Sender: FDA-Public Use
  Company Number: NL-PFIZER INC-2012242778

PATIENT
  Age: 40 Year
  Sex: Male

DRUGS (9)
  1. GENOTROPIN [Suspect]
     Dosage: 0.3 mg, 1x/day
  2. SUSTANON [Concomitant]
     Dosage: 100 mg, weekly
  3. LEVOTHYROXINE [Concomitant]
     Dosage: 200 ug, 1x/day
  4. HYDROCORTISON [Concomitant]
     Dosage: 30 mg, weekly
  5. MINRIN [Concomitant]
     Dosage: 0.1 ug, 1x/day
  6. NEXIUM [Concomitant]
     Dosage: 40 mg, 1x/day
  7. SIMVASTATIN [Concomitant]
     Dosage: 10 mg, 1x/day
  8. FOLIC ACID [Concomitant]
     Dosage: 5 mg, 1x/day
  9. VITAMIN B12 [Concomitant]
     Dosage: 1000 ug, every 3 months

REACTIONS (1)
  - Obesity [Recovered/Resolved with Sequelae]
